FAERS Safety Report 12375579 (Version 3)
Quarter: 2016Q3

REPORT INFORMATION
  Report Type: Spontaneous
  Country: FI (occurrence: FI)
  Receive Date: 20160517
  Receipt Date: 20160715
  Transmission Date: 20161109
  Serious: Yes (Other)
  Sender: FDA-Public Use
  Company Number: FI-009507513-1604FIN014585

PATIENT
  Age: 22 Year
  Sex: Female

DRUGS (3)
  1. NEXPLANON [Suspect]
     Active Substance: ETONOGESTREL
     Dosage: UNK
     Route: 059
     Dates: start: 201505, end: 20160419
  2. NEXPLANON [Suspect]
     Active Substance: ETONOGESTREL
     Dosage: UNK
     Route: 059
     Dates: start: 20160419
  3. NEXPLANON [Suspect]
     Active Substance: ETONOGESTREL
     Dosage: UNK
     Route: 059
     Dates: start: 201209, end: 201505

REACTIONS (6)
  - Hepatitis C [Recovered/Resolved]
  - Metrorrhagia [Unknown]
  - Withdrawal bleed [Unknown]
  - Menorrhagia [Unknown]
  - Amenorrhoea [Recovered/Resolved]
  - Cervical dysplasia [Unknown]

NARRATIVE: CASE EVENT DATE: 201209
